FAERS Safety Report 5037172-4 (Version None)
Quarter: 2006Q2

REPORT INFORMATION
  Report Type: 
  Country: None (occurrence: None)
  Receive Date: 20060623
  Receipt Date: 20060608
  Transmission Date: 20061013
  Serious: Yes (Other)
  Sender: FDA-Public Use
  Company Number: DE200606002475

PATIENT
  Sex: Female

DRUGS (2)
  1. YENTREVE (DULOXETINE HYDROCHLORIDE) CAPSULE [Suspect]
     Indication: INCONTINENCE
     Dosage: SEE IMAGE
     Route: 048
     Dates: end: 20060404
  2. YENTREVE (DULOXETINE HYDROCHLORIDE) CAPSULE [Suspect]
     Indication: INCONTINENCE
     Dosage: SEE IMAGE
     Route: 048
     Dates: start: 20051201

REACTIONS (10)
  - AGGRESSION [None]
  - BLOOD PRESSURE DECREASED [None]
  - DIZZINESS [None]
  - DRUG INEFFECTIVE [None]
  - FALL [None]
  - HEAD INJURY [None]
  - INSOMNIA [None]
  - JOINT SPRAIN [None]
  - MENTAL DISORDER [None]
  - NERVOUSNESS [None]
